FAERS Safety Report 8962706 (Version 1)
Quarter: 2012Q4

REPORT INFORMATION
  Report Type: Spontaneous
  Country: GB (occurrence: None)
  Receive Date: 20121206
  Receipt Date: 20121206
  Transmission Date: 20130627
  Serious: Yes (Disabling)
  Sender: FDA-Public Use
  Company Number: 2012AP004084

PATIENT
  Age: 68 Year
  Sex: Female

DRUGS (4)
  1. ALENDRONATE [Suspect]
     Indication: OSTEOPOROSIS
     Route: 048
     Dates: start: 201101
  2. CANDESARTAN CILEXETIL [Suspect]
     Indication: PROTEIN URINE
     Route: 048
     Dates: start: 2008, end: 2008
  3. LANTUS [Concomitant]
  4. NOVOMIX /01475801/ (INSULIN ASPART) [Concomitant]

REACTIONS (3)
  - Back pain [None]
  - Myalgia [None]
  - Muscle spasms [None]
